FAERS Safety Report 14914057 (Version 2)
Quarter: 2018Q2

REPORT INFORMATION
  Report Type: Spontaneous
  Country: RO (occurrence: RO)
  Receive Date: 20180518
  Receipt Date: 20180523
  Transmission Date: 20180711
  Serious: Yes (Other)
  Sender: FDA-Public Use
  Company Number: RO-PFIZER INC-2018195520

PATIENT
  Age: 47 Year
  Sex: Female

DRUGS (2)
  1. SUTENT [Suspect]
     Active Substance: SUNITINIB MALATE
     Dosage: 50 MG/ DAY, CYCLIC (2/1)
     Dates: start: 201708, end: 201711
  2. SUTENT [Suspect]
     Active Substance: SUNITINIB MALATE
     Indication: RENAL CANCER METASTATIC
     Dosage: 50 MG, CYCLIC (4/2)
     Dates: start: 201504, end: 201708

REACTIONS (15)
  - Dry skin [Unknown]
  - Neoplasm progression [Unknown]
  - Skin hypertrophy [Unknown]
  - Oedema peripheral [Unknown]
  - Hypothyroidism [Unknown]
  - Generalised oedema [Unknown]
  - Chronic kidney disease [Unknown]
  - Nausea [Unknown]
  - Stomatitis [Unknown]
  - Essential hypertension [Unknown]
  - Skin fissures [Unknown]
  - Condition aggravated [Unknown]
  - Pallor [Unknown]
  - Diarrhoea [Unknown]
  - Abdominal pain [Unknown]

NARRATIVE: CASE EVENT DATE: 201508
